FAERS Safety Report 18742330 (Version 2)
Quarter: 2021Q2

REPORT INFORMATION
  Report Type: Spontaneous
  Country: AT (occurrence: AT)
  Receive Date: 20210114
  Receipt Date: 20210621
  Transmission Date: 20210717
  Serious: Yes (Other)
  Sender: FDA-Public Use
  Company Number: AT-MYLANLABS-2021M1001873

PATIENT
  Age: 64 Year
  Sex: Male

DRUGS (21)
  1. DOXORUBICIN [Suspect]
     Active Substance: DOXORUBICIN
     Indication: DIFFUSE LARGE B-CELL LYMPHOMA
     Dosage: UNK 8XR?CHOP14 TO 04/07
     Route: 065
     Dates: start: 200704
  2. BENDAMUSTINE [Suspect]
     Active Substance: BENDAMUSTINE
     Indication: PRODUCT USED FOR UNKNOWN INDICATION
     Dosage: UNK R?BENDAMUSTINE
     Route: 065
     Dates: start: 201405
  3. CISPLATIN. [Suspect]
     Active Substance: CISPLATIN
     Indication: DIFFUSE LARGE B-CELL LYMPHOMA
     Dosage: UNK R?DHAP
     Route: 065
     Dates: start: 201209, end: 201211
  4. RITUXIMAB;VORHYALURONIDASE ALFA [Suspect]
     Active Substance: HYALURONIDASE (HUMAN RECOMBINANT)\RITUXIMAB
     Indication: DIFFUSE LARGE B-CELL LYMPHOMA
     Dosage: UNK 3X R?ICE
     Route: 058
     Dates: start: 20100701
  5. ETOPOSIDE. [Suspect]
     Active Substance: ETOPOSIDE
     Indication: DIFFUSE LARGE B-CELL LYMPHOMA
     Dosage: UNK 3X R?ICE
     Route: 065
     Dates: start: 201007, end: 201009
  6. MELPHALAN. [Suspect]
     Active Substance: MELPHALAN
     Indication: DIFFUSE LARGE B-CELL LYMPHOMA
     Dosage: UNK
     Route: 065
     Dates: start: 20201018
  7. PREDNISONE. [Suspect]
     Active Substance: PREDNISONE
     Indication: DIFFUSE LARGE B-CELL LYMPHOMA
     Dosage: UNK 8XR?CHOP14 TO 04/07
     Route: 065
     Dates: start: 200704
  8. RITUXIMAB. [Suspect]
     Active Substance: RITUXIMAB
     Indication: DIFFUSE LARGE B-CELL LYMPHOMA
     Dosage: 3X R?ICE
     Route: 058
     Dates: start: 20100701
  9. RITUXIMAB. [Suspect]
     Active Substance: RITUXIMAB
     Dosage: R?BENDAMUSTINE
     Route: 058
     Dates: start: 20140501
  10. RITUXIMAB. [Suspect]
     Active Substance: RITUXIMAB
     Dosage: R?DHAP
     Route: 058
     Dates: start: 20120901
  11. CARMUSTINE. [Suspect]
     Active Substance: CARMUSTINE
     Indication: DIFFUSE LARGE B-CELL LYMPHOMA
     Dosage: UNK
     Route: 065
     Dates: start: 20201018
  12. ETOPOSIDE. [Suspect]
     Active Substance: ETOPOSIDE
     Dosage: UNK
     Route: 065
     Dates: start: 20201018
  13. CYCLOPHOSPHAMIDE. [Suspect]
     Active Substance: CYCLOPHOSPHAMIDE
     Indication: DIFFUSE LARGE B-CELL LYMPHOMA
     Dosage: UNK 8XR?CHOP14 TO 04/07
     Route: 065
     Dates: start: 200704
  14. CYTARABINE. [Suspect]
     Active Substance: CYTARABINE
     Dosage: UNK
     Route: 065
     Dates: start: 20201018
  15. VINCRISTINE [Suspect]
     Active Substance: VINCRISTINE
     Indication: DIFFUSE LARGE B-CELL LYMPHOMA
     Dosage: UNK 8XR?CHOP14 TO 04/07
     Route: 065
     Dates: start: 200704
  16. CARBOPLATIN. [Suspect]
     Active Substance: CARBOPLATIN
     Indication: DIFFUSE LARGE B-CELL LYMPHOMA
     Dosage: UNK 3X R?ICE
     Route: 065
     Dates: start: 201007, end: 201009
  17. RITUXIMAB;VORHYALURONIDASE ALFA [Suspect]
     Active Substance: HYALURONIDASE (HUMAN RECOMBINANT)\RITUXIMAB
     Dosage: UNK R?BENDAMUSTINE
     Route: 058
     Dates: start: 20140501
  18. IFOSFAMIDE. [Suspect]
     Active Substance: IFOSFAMIDE
     Indication: DIFFUSE LARGE B-CELL LYMPHOMA
     Dosage: UNK 3X R?ICE
     Route: 065
     Dates: start: 201007, end: 201009
  19. DEXAMETHASONE. [Suspect]
     Active Substance: DEXAMETHASONE
     Indication: DIFFUSE LARGE B-CELL LYMPHOMA
     Dosage: UNK R?DHAP
     Route: 065
     Dates: start: 201209, end: 201211
  20. CYTARABINE. [Suspect]
     Active Substance: CYTARABINE
     Indication: DIFFUSE LARGE B-CELL LYMPHOMA
     Dosage: UNK R?DHAP
     Route: 065
     Dates: start: 201209, end: 201211
  21. RITUXIMAB;VORHYALURONIDASE ALFA [Suspect]
     Active Substance: HYALURONIDASE (HUMAN RECOMBINANT)\RITUXIMAB
     Dosage: UNK R?DHAP
     Route: 058
     Dates: start: 20120901

REACTIONS (2)
  - Pancytopenia [Unknown]
  - B-cell lymphoma recurrent [Unknown]

NARRATIVE: CASE EVENT DATE: 201209
